FAERS Safety Report 19981516 (Version 2)
Quarter: 2021Q4

REPORT INFORMATION
  Report Type: Spontaneous
  Country: CA (occurrence: CA)
  Receive Date: 20211021
  Receipt Date: 20211028
  Transmission Date: 20220303
  Serious: Yes (Hospitalization)
  Sender: FDA-Public Use
  Company Number: CA-TEVA-2021-CA-1966719

PATIENT
  Age: 44 Year
  Sex: Male

DRUGS (8)
  1. AZATHIOPRINE [Suspect]
     Active Substance: AZATHIOPRINE
     Indication: Multiple sclerosis
     Route: 065
  2. AZATHIOPRINE [Suspect]
     Active Substance: AZATHIOPRINE
     Indication: Immune thrombocytopenia
  3. PREDNISONE [Suspect]
     Active Substance: PREDNISONE
     Indication: Multiple sclerosis
     Route: 065
  4. PREDNISONE [Suspect]
     Active Substance: PREDNISONE
     Indication: Immune thrombocytopenia
  5. OCRELIZUMAB [Suspect]
     Active Substance: OCRELIZUMAB
     Indication: Multiple sclerosis
     Route: 065
  6. OCRELIZUMAB [Suspect]
     Active Substance: OCRELIZUMAB
     Indication: Immune thrombocytopenia
  7. AMPHOTERICIN B [Suspect]
     Active Substance: AMPHOTERICIN B
     Indication: Cryptococcosis
     Route: 065
  8. FLUCYTOSINE [Suspect]
     Active Substance: FLUCYTOSINE
     Indication: Cryptococcosis
     Route: 065

REACTIONS (2)
  - Cryptococcal meningoencephalitis [Unknown]
  - Drug ineffective [Unknown]
